FAERS Safety Report 5066849-X (Version None)
Quarter: 2006Q3

REPORT INFORMATION
  Report Type: 
  Country: None (occurrence: None)
  Receive Date: 20060726
  Receipt Date: 20060712
  Transmission Date: 20061208
  Serious: Yes (Death, Hospitalization)
  Sender: FDA-Public Use
  Company Number: 2006001214

PATIENT
  Age: 66 Year
  Sex: Male

DRUGS (5)
  1. TARCEVA [Suspect]
     Indication: NON-SMALL CELL LUNG CANCER
     Dosage: 150 MG (QD), ORAL
     Route: 048
     Dates: start: 20060315, end: 20060413
  2. AVELOX [Suspect]
     Indication: RESPIRATORY TRACT INFECTION
     Dates: start: 20060321, end: 20060405
  3. DECORTIN (PREDNISONE) [Concomitant]
  4. RAMIPRIL [Concomitant]
  5. MORPHINE [Concomitant]

REACTIONS (18)
  - ANURIA [None]
  - ASTHENIA [None]
  - BREATH SOUNDS ABNORMAL [None]
  - CHEST PAIN [None]
  - DEHYDRATION [None]
  - DIARRHOEA [None]
  - ELECTROCARDIOGRAM ABNORMAL [None]
  - FALL [None]
  - GENERAL PHYSICAL HEALTH DETERIORATION [None]
  - HAEMOPTYSIS [None]
  - LACK OF SPONTANEOUS SPEECH [None]
  - NAIL DISORDER [None]
  - PNEUMONIA [None]
  - POST PROCEDURAL COMPLICATION [None]
  - RENAL FAILURE [None]
  - SEPSIS [None]
  - SKIN TURGOR DECREASED [None]
  - TACHYCARDIA [None]
